FAERS Safety Report 25325437 (Version 3)
Quarter: 2025Q4

REPORT INFORMATION
  Report Type: Spontaneous
  Country: AR (occurrence: AR)
  Receive Date: 20250516
  Receipt Date: 20251029
  Transmission Date: 20260118
  Serious: Yes (Hospitalization, Other)
  Sender: SANDOZ
  Company Number: AR-002147023-NVSC2023AR272507

PATIENT
  Age: 57 Year
  Sex: Female

DRUGS (15)
  1. FULVESTRANT [Suspect]
     Active Substance: FULVESTRANT
     Indication: Breast cancer metastatic
     Route: 065
  2. KISQALI [Suspect]
     Active Substance: RIBOCICLIB SUCCINATE
     Dosage: 2 DOSAGE FORM (400 MG), QD
     Route: 048
     Dates: start: 20250310
  3. KISQALI [Suspect]
     Active Substance: RIBOCICLIB SUCCINATE
     Dosage: 2 DOSAGE FORM (400 MG), QD
     Route: 048
     Dates: start: 20250310
  4. KISQALI [Suspect]
     Active Substance: RIBOCICLIB SUCCINATE
     Dosage: 2 DF
     Route: 048
  5. KISQALI [Suspect]
     Active Substance: RIBOCICLIB SUCCINATE
     Dosage: 2 DOSAGE FORM (15 FEB)
     Route: 048
  6. KISQALI [Suspect]
     Active Substance: RIBOCICLIB SUCCINATE
     Dosage: 3 DOSAGE FORM, QD
     Route: 048
     Dates: start: 20220628
  7. KISQALI [Suspect]
     Active Substance: RIBOCICLIB SUCCINATE
     Dosage: 600 MG, QD
     Route: 048
  8. KISQALI [Suspect]
     Active Substance: RIBOCICLIB SUCCINATE
     Indication: Breast cancer metastatic
     Dosage: UNK
     Route: 048
     Dates: start: 20220628
  9. KISQALI [Suspect]
     Active Substance: RIBOCICLIB SUCCINATE
     Dosage: UNK (10 FEB)
     Route: 048
  10. KISQALI [Suspect]
     Active Substance: RIBOCICLIB SUCCINATE
     Dosage: UNK (28 MAR)
     Route: 048
  11. KISQALI [Suspect]
     Active Substance: RIBOCICLIB SUCCINATE
     Dosage: UNK (RESTARTED AFTER A MONTH OF SURGERY)
     Route: 065
  12. LETROZOLE [Suspect]
     Active Substance: LETROZOLE
     Dosage: 2.5 MG, QD
     Route: 048
     Dates: start: 20220628
  13. LETROZOLE [Suspect]
     Active Substance: LETROZOLE
     Indication: Breast cancer metastatic
     Dosage: 2.5 MG
     Route: 048
     Dates: start: 20210810
  14. ZOLEDRONIC ACID [Suspect]
     Active Substance: ZOLEDRONIC ACID
     Indication: Breast cancer metastatic
     Dosage: UNK
     Route: 065
     Dates: start: 20220920
  15. ZOLEDRONIC ACID [Suspect]
     Active Substance: ZOLEDRONIC ACID
     Dosage: UNK
     Route: 065
     Dates: start: 202210, end: 202401

REACTIONS (38)
  - Pneumonia [Not Recovered/Not Resolved]
  - General physical health deterioration [Unknown]
  - Pulmonary oedema [Unknown]
  - Ankle fracture [Unknown]
  - Urinary tract infection [Recovered/Resolved]
  - Metastases to bone [Unknown]
  - Metastases to lymph nodes [Unknown]
  - Lower limb fracture [Unknown]
  - Breast cancer [Unknown]
  - Neoplasm malignant [Unknown]
  - Fall [Unknown]
  - Malignant neoplasm progression [Unknown]
  - Hepatic steatosis [Unknown]
  - Breast mass [Unknown]
  - Nasopharyngitis [Unknown]
  - Oropharyngeal pain [Unknown]
  - Rhinorrhoea [Unknown]
  - Pulmonary mass [Unknown]
  - Pain [Unknown]
  - Pain in extremity [Unknown]
  - Breast induration [Unknown]
  - Skeletal injury [Unknown]
  - Inflammation [Unknown]
  - Drug intolerance [Unknown]
  - Decreased immune responsiveness [Unknown]
  - Developmental delay [Unknown]
  - Abdominal pain upper [Unknown]
  - Diarrhoea [Unknown]
  - Nausea [Recovered/Resolved]
  - Vomiting [Recovered/Resolved]
  - Memory impairment [Unknown]
  - Drug ineffective [Unknown]
  - Rhinorrhoea [Unknown]
  - Neuralgia [Unknown]
  - Asthenia [Unknown]
  - Gait disturbance [Unknown]
  - Movement disorder [Unknown]
  - Inappropriate schedule of product administration [Unknown]

NARRATIVE: CASE EVENT DATE: 20240102
